FAERS Safety Report 26074603 (Version 1)
Quarter: 2025Q4

REPORT INFORMATION
  Report Type: Spontaneous
  Country: US (occurrence: None)
  Receive Date: 20251120
  Receipt Date: 20251120
  Transmission Date: 20260117
  Serious: Yes (Other)
  Sender: FDA-CTU
  Company Number: None

PATIENT
  Sex: Male
  Weight: 2.55 kg

DRUGS (11)
  1. ARIPIPRAZOLE [Suspect]
     Active Substance: ARIPIPRAZOLE
     Indication: Depression
     Dates: start: 20220401, end: 20220522
  2. ARIPIPRAZOLE [Suspect]
     Active Substance: ARIPIPRAZOLE
     Indication: Anxiety
  3. maternal medication: amphetamine mix IR [Concomitant]
  4. maternal medication: clonazepam [Concomitant]
  5. maternal medication: labetalol [Concomitant]
  6. maternal medication: methylprednisolone [Concomitant]
  7. maternal medication: estradiol [Concomitant]
  8. maternal medication: progesterone [Concomitant]
  9. maternal medication: insulin [Concomitant]
  10. maternal medication: ondansetron [Concomitant]
  11. maternal medication: sucralfate [Concomitant]

REACTIONS (2)
  - Inguinal hernia [None]
  - Haemangioma [None]

NARRATIVE: CASE EVENT DATE: 20230211
